FAERS Safety Report 8210282-6 (Version None)
Quarter: 2012Q1

REPORT INFORMATION
  Report Type: 
  Country: None (occurrence: None)
  Receive Date: 20120314
  Receipt Date: 20111018
  Transmission Date: 20120608
  Serious: Yes (Other)
  Sender: FDA-Public Use
  Company Number: US-ASTRAZENECA-2010SE11139

PATIENT
  Age: 68 Year
  Sex: Male

DRUGS (14)
  1. PLAVIX [Concomitant]
  2. NORTRIPTLINE [Concomitant]
  3. FLEXERIL [Concomitant]
  4. VITAMIN E [Concomitant]
  5. LOVAZA [Concomitant]
  6. BETA-BLOCKERS [Concomitant]
  7. VITAMIN B COMPLEX CAP [Concomitant]
  8. TEMAZEPAM [Concomitant]
  9. FENOFIBRATE [Concomitant]
  10. TOPROL-XL [Suspect]
     Route: 048
  11. LIPITOR [Concomitant]
  12. OXYCODONE HCL [Concomitant]
  13. SINGULAIR [Concomitant]
  14. LOVASTATIN [Concomitant]

REACTIONS (7)
  - CARDIAC DISORDER [None]
  - COLITIS MICROSCOPIC [None]
  - PALPITATIONS [None]
  - PAIN IN EXTREMITY [None]
  - DRUG DOSE OMISSION [None]
  - MYOCARDIAL INFARCTION [None]
  - GASTRIC DISORDER [None]
